FAERS Safety Report 8978470 (Version 1)
Quarter: 2012Q4

REPORT INFORMATION
  Report Type: Spontaneous
  Country: US (occurrence: None)
  Receive Date: 20121218
  Receipt Date: 20121218
  Transmission Date: 20130627
  Serious: Yes (Death)
  Sender: FDA-Public Use
  Company Number: None

PATIENT
  Age: 99 Year
  Sex: Male
  Weight: 79.83 kg

DRUGS (1)
  1. TEMAZEPAM [Suspect]
     Indication: INSOMNIA
     Dosage: 15 MG ONCE A DAY AS NEEDED
     Dates: start: 20121018, end: 20121108

REACTIONS (7)
  - Intentional self-injury [None]
  - Gun shot wound [None]
  - Mood altered [None]
  - Nausea [None]
  - Abdominal pain upper [None]
  - Agitation [None]
  - Aggression [None]
